FAERS Safety Report 4503325-4 (Version None)
Quarter: 2004Q4

REPORT INFORMATION
  Report Type: 
  Country: None (occurrence: None)
  Receive Date: 20041112
  Receipt Date: 20041105
  Transmission Date: 20050328
  Serious: Yes (Other)
  Sender: FDA-Public Use
  Company Number: S04-USA-07280-01

PATIENT
  Age: 91 Year
  Sex: Female

DRUGS (15)
  1. NAMENDA [Suspect]
     Indication: DEMENTIA ALZHEIMER'S TYPE
     Dosage: 5 MG BID PO
     Route: 048
     Dates: start: 20040305, end: 20040319
  2. NAMENDA [Suspect]
     Indication: DEMENTIA ALZHEIMER'S TYPE
     Dosage: 5 MG QD PO
     Route: 048
     Dates: start: 20040506, end: 20040519
  3. NAMENDA [Suspect]
     Indication: DEMENTIA ALZHEIMER'S TYPE
     Dosage: 5 MG BID PO
     Route: 048
     Dates: start: 20040520
  4. NAMENDA [Suspect]
     Indication: DEMENTIA ALZHEIMER'S TYPE
     Dosage: 5 MG  QD PO
     Route: 048
     Dates: start: 20040220, end: 20040304
  5. LEXAPRO [Suspect]
     Indication: ANXIETY
     Dosage: 10  MG QD PO
     Route: 048
     Dates: start: 20040130, end: 20040219
  6. LEXAPRO [Suspect]
     Indication: DEPRESSION
     Dosage: 10  MG QD PO
     Route: 048
     Dates: start: 20040130, end: 20040219
  7. LEXAPRO [Suspect]
     Indication: ANXIETY
     Dosage: 20  MG QD PO
     Route: 048
     Dates: start: 20040220, end: 20040319
  8. LEXAPRO [Suspect]
     Indication: DEPRESSION
     Dosage: 20  MG QD PO
     Route: 048
     Dates: start: 20040220, end: 20040319
  9. LEXAPRO [Suspect]
     Indication: ANXIETY
     Dosage: 10  MG QD PO
     Route: 048
     Dates: start: 20040320
  10. LEXAPRO [Suspect]
     Indication: DEPRESSION
     Dosage: 10  MG QD PO
     Route: 048
     Dates: start: 20040320
  11. DETROL [Concomitant]
  12. PLAVIX [Concomitant]
  13. LOVASTATIN [Concomitant]
  14. LEVOXYL [Concomitant]
  15. ZANAC (RANITIDINE HYDROCHLORIDE) [Concomitant]

REACTIONS (2)
  - ELECTROCARDIOGRAM ABNORMAL [None]
  - ELECTROCARDIOGRAM QT CORRECTED INTERVAL PROLONGED [None]
